FAERS Safety Report 8288958-4 (Version None)
Quarter: 2012Q2

REPORT INFORMATION
  Report Type: 
  Country: None (occurrence: None)
  Receive Date: 20120417
  Receipt Date: 20120411
  Transmission Date: 20120825
  Serious: Yes (Hospitalization)
  Sender: FDA-Public Use
  Company Number: US-BAYER-2011-050467

PATIENT
  Age: 43 Year
  Sex: Female
  Weight: 90.703 kg

DRUGS (17)
  1. DIOVAN HCT [Concomitant]
     Dosage: UNK UNK, QD
     Route: 048
  2. LOVAZA [Concomitant]
     Dosage: 200 MG, TID
     Route: 048
  3. CALCIUM CARBONATE [Concomitant]
     Dosage: 600 MG, QD
     Route: 048
  4. YAZ [Suspect]
     Indication: PREMENSTRUAL SYNDROME
     Dosage: UNK
     Route: 048
     Dates: start: 20060101, end: 20090101
  5. YASMIN [Suspect]
     Indication: PREMENSTRUAL SYNDROME
     Dosage: UNK
     Route: 048
     Dates: start: 20060101, end: 20090101
  6. VITAMIN B COMPLEX CAP [Concomitant]
     Dosage: 100 MG, QD
     Route: 048
  7. LEXAPRO [Concomitant]
     Dosage: 10 MG, QD
     Route: 048
  8. ACIDOPHILUS [Concomitant]
     Dosage: 10 MG, QD
     Route: 048
  9. KLOR-CON [Concomitant]
     Dosage: 20 MEQ, QD
     Route: 048
  10. DROSPIRENONE AND ETHINYL ESTRADIOL [Suspect]
     Indication: PREMENSTRUAL SYNDROME
     Dosage: UNK
     Route: 048
     Dates: start: 20060101, end: 20090101
  11. ASPIRIN [Concomitant]
     Dosage: 81 MG, QD
     Route: 048
  12. BUSPAR [Concomitant]
     Dosage: 10 MG, BID
     Route: 048
  13. METOPROLOL [Concomitant]
     Dosage: 25 MG, QD
     Route: 048
  14. ASCORBIC ACID [Concomitant]
     Dosage: 1000 MG, QD
     Route: 048
  15. IBUPROFEN [Concomitant]
  16. MALIC ACID [Concomitant]
     Dosage: 600 MG, QD
     Route: 048
  17. SEROQUEL [Concomitant]
     Dosage: 50 MG, QD
     Route: 048

REACTIONS (8)
  - CEREBROVASCULAR ACCIDENT [None]
  - PAIN [None]
  - INJURY [None]
  - AMNESIA [None]
  - UNEVALUABLE EVENT [None]
  - IMPAIRED SELF-CARE [None]
  - MIGRAINE [None]
  - INCONTINENCE [None]
